FAERS Safety Report 22636427 (Version 1)
Quarter: 2023Q2

REPORT INFORMATION
  Report Type: Spontaneous
  Country: US (occurrence: US)
  Receive Date: 20230623
  Receipt Date: 20230623
  Transmission Date: 20230721
  Serious: Yes (Other)
  Sender: FDA-Public Use
  Company Number: US-BAYER-2023A087018

PATIENT
  Age: 23 Year
  Sex: Male

DRUGS (3)
  1. KOVALTRY [Suspect]
     Active Substance: ANTIHEMOPHILIC FACTOR, HUMAN RECOMBINANT
     Indication: Factor VIII deficiency
     Dosage: 3525 IU 3525 UNITS (3173-3878) SLOW IV PUSH EVERY OTHER DAY, MINOR BLEEDS
     Route: 042
     Dates: start: 202303
  2. KOVALTRY [Suspect]
     Active Substance: ANTIHEMOPHILIC FACTOR, HUMAN RECOMBINANT
     Indication: Factor VIII deficiency
     Dosage: 1410-1763 UNITS SLOW IV PUSH FOR MAJOR BLEEDS
     Route: 042
     Dates: start: 202303
  3. KOVALTRY [Suspect]
     Active Substance: ANTIHEMOPHILIC FACTOR, HUMAN RECOMBINANT
     Indication: Factor VIII deficiency
     Dosage: INFUSE 3525 UNITS (3173-3878) IV AT THE TIME OF BLEEDS
     Route: 042
     Dates: start: 202303

REACTIONS (2)
  - Joint injury [None]
  - Haemarthrosis [None]

NARRATIVE: CASE EVENT DATE: 20230601
